FAERS Safety Report 19880317 (Version 2)
Quarter: 2021Q4

REPORT INFORMATION
  Report Type: Report from Study
  Country: CA (occurrence: CA)
  Receive Date: 20210925
  Receipt Date: 20211112
  Transmission Date: 20220304
  Serious: Yes (Other)
  Sender: FDA-Public Use
  Company Number: CA-JNJFOC-20210942401

PATIENT
  Age: 35 Year
  Sex: Male
  Weight: 186 kg

DRUGS (2)
  1. REMICADE [Suspect]
     Active Substance: INFLIXIMAB
     Indication: Crohn^s disease
     Route: 042
  2. REMICADE [Suspect]
     Active Substance: INFLIXIMAB
     Route: 042
     Dates: start: 20210825

REACTIONS (2)
  - Herpes zoster [Unknown]
  - Abscess [Unknown]

NARRATIVE: CASE EVENT DATE: 20210915
